FAERS Safety Report 7372037-4 (Version None)
Quarter: 2011Q1

REPORT INFORMATION
  Report Type: 
  Country: None (occurrence: None)
  Receive Date: 20110324
  Receipt Date: 20110311
  Transmission Date: 20110831
  Serious: Yes (Other)
  Sender: FDA-Public Use
  Company Number: PHHY2011US14886

PATIENT
  Sex: Female

DRUGS (5)
  1. MULTI-VITAMINS [Concomitant]
  2. PLAQUENIL [Concomitant]
  3. RECLAST [Suspect]
     Indication: OSTEOPENIA
     Dosage: 5 MG/100 ML/ YEAR
     Dates: start: 20101230
  4. CALCIUM [Concomitant]
  5. HORMONES NOS [Concomitant]

REACTIONS (13)
  - ARTHRITIS [None]
  - MYALGIA [None]
  - HEADACHE [None]
  - RHEUMATOID ARTHRITIS [None]
  - MOVEMENT DISORDER [None]
  - INADEQUATE ANALGESIA [None]
  - OEDEMA PERIPHERAL [None]
  - INFLUENZA LIKE ILLNESS [None]
  - CONDITION AGGRAVATED [None]
  - ARTHRALGIA [None]
  - JOINT RANGE OF MOTION DECREASED [None]
  - PAIN IN EXTREMITY [None]
  - NODULE [None]
